FAERS Safety Report 5739657-1 (Version None)
Quarter: 2008Q2

REPORT INFORMATION
  Report Type: 
  Country: None (occurrence: None)
  Receive Date: 20080513
  Receipt Date: 20080506
  Transmission Date: 20081010
  Serious: Yes (Other)
  Sender: FDA-Public Use
  Company Number: 19278

PATIENT
  Age: 24 Year
  Sex: Male

DRUGS (5)
  1. VINBLASTINE SULFATE [Suspect]
     Indication: HODGKIN'S DISEASE MIXED CELLULARITY STAGE III
  2. DOXORUBICIN HCL [Suspect]
     Indication: HODGKIN'S DISEASE MIXED CELLULARITY STAGE III
  3. MUSTINE [Suspect]
     Indication: HODGKIN'S DISEASE MIXED CELLULARITY STAGE III
  4. PROCARBAZINE [Suspect]
     Indication: HODGKIN'S DISEASE MIXED CELLULARITY STAGE III
  5. PREDNISONE TAB [Suspect]
     Indication: HODGKIN'S DISEASE MIXED CELLULARITY STAGE III

REACTIONS (2)
  - FEBRILE NEUTROPENIA [None]
  - MALARIA [None]
